FAERS Safety Report 4984912-6 (Version None)
Quarter: 2006Q2

REPORT INFORMATION
  Report Type: 
  Country: None (occurrence: None)
  Receive Date: 20060425
  Receipt Date: 20060425
  Transmission Date: 20061013
  Serious: Yes (Other)
  Sender: FDA-Public Use
  Company Number: None

PATIENT
  Sex: Male

DRUGS (1)
  1. ZICAM - NO DROP LIQUED NASAL GEL [Suspect]
     Dates: start: 20060303, end: 20060304

REACTIONS (1)
  - ANOSMIA [None]
